FAERS Safety Report 7801491-6 (Version None)
Quarter: 2011Q4

REPORT INFORMATION
  Report Type: 
  Country: None (occurrence: None)
  Receive Date: 20111007
  Receipt Date: 20110927
  Transmission Date: 20120403
  Serious: Yes (Other)
  Sender: FDA-Public Use
  Company Number: US-JNJFOC-20110707233

PATIENT
  Sex: Male
  Weight: 90.27 kg

DRUGS (4)
  1. REMICADE [Suspect]
     Route: 042
     Dates: start: 20110411
  2. REMICADE [Suspect]
     Route: 042
     Dates: start: 20110621
  3. REMICADE [Suspect]
     Route: 042
     Dates: start: 20110429
  4. REMICADE [Suspect]
     Indication: PSORIATIC ARTHROPATHY
     Route: 042
     Dates: start: 20110526

REACTIONS (2)
  - WEIGHT INCREASED [None]
  - FLUID RETENTION [None]
